FAERS Safety Report 6780981-1 (Version None)
Quarter: 2010Q2

REPORT INFORMATION
  Report Type: 
  Country: None (occurrence: None)
  Receive Date: 20100621
  Receipt Date: 20100621
  Transmission Date: 20101027
  Serious: Yes (Hospitalization, Other)
  Sender: FDA-Public Use
  Company Number: None

PATIENT
  Sex: Female
  Weight: 16.7831 kg

DRUGS (3)
  1. CHILDREN'S MOTRIN [Suspect]
     Indication: PYREXIA
     Dosage: CHILDS DOSE 3X DAILY FOR 4 DAY PO
     Route: 048
     Dates: start: 20100427, end: 20100501
  2. PREDNISONE [Concomitant]
  3. DIPENTUM [Concomitant]

REACTIONS (7)
  - BLOOD URINE PRESENT [None]
  - COLITIS [None]
  - CROHN'S DISEASE [None]
  - DIARRHOEA [None]
  - GASTROINTESTINAL DISORDER [None]
  - HAEMATOCHEZIA [None]
  - VOMITING [None]
